FAERS Safety Report 5196677-6 (Version None)
Quarter: 2007Q1

REPORT INFORMATION
  Report Type: 
  Country: None (occurrence: None)
  Receive Date: 20070103
  Receipt Date: 20061220
  Transmission Date: 20070707
  Serious: Yes (Other)
  Sender: FDA-Public Use
  Company Number: PHFR2006GB03729

PATIENT
  Age: 29 Year
  Sex: Female

DRUGS (2)
  1. TEGRETOL [Suspect]
     Dosage: 600 MG/DAY
  2. TEGRETOL [Suspect]
     Dosage: 1600 MG/DAY

REACTIONS (2)
  - BREAST DISCHARGE [None]
  - LABORATORY TEST INTERFERENCE [None]
